FAERS Safety Report 6079303-3 (Version None)
Quarter: 2009Q1

REPORT INFORMATION
  Report Type: 
  Country: None (occurrence: None)
  Receive Date: 20090216
  Receipt Date: 20090203
  Transmission Date: 20090719
  Serious: Yes (Hospitalization)
  Sender: FDA-Public Use
  Company Number: US-MERCK-0902USA02342

PATIENT
  Sex: Female

DRUGS (3)
  1. PRINIVIL [Suspect]
     Route: 048
  2. DILAUDID [Suspect]
     Route: 065
  3. POTASSIUM (UNSPECIFIED) [Concomitant]
     Route: 065

REACTIONS (6)
  - BLOOD PRESSURE SYSTOLIC DECREASED [None]
  - HYPOVOLAEMIA [None]
  - MENTAL STATUS CHANGES [None]
  - MICROCYTIC ANAEMIA [None]
  - UNRESPONSIVE TO STIMULI [None]
  - UROSEPSIS [None]
